APPROVED DRUG PRODUCT: RHINOCORT ALLERGY
Active Ingredient: BUDESONIDE
Strength: 0.032MG/SPRAY
Dosage Form/Route: SPRAY, METERED;NASAL
Application: N020746 | Product #003
Applicant: KENVUE BRANDS LLC
Approved: Mar 23, 2015 | RLD: Yes | RS: Yes | Type: OTC